FAERS Safety Report 22209405 (Version 1)
Quarter: 2023Q2

REPORT INFORMATION
  Report Type: Spontaneous
  Country: PL (occurrence: PL)
  Receive Date: 20230414
  Receipt Date: 20230414
  Transmission Date: 20230722
  Serious: Yes (Hospitalization, Other)
  Sender: FDA-Public Use
  Company Number: PL-BRISTOL-MYERS SQUIBB COMPANY-2023-049664

PATIENT
  Age: 61 Year
  Sex: Male
  Weight: 94 kg

DRUGS (17)
  1. OPDIVO [Suspect]
     Active Substance: NIVOLUMAB
     Indication: Metastatic malignant melanoma
     Dates: start: 20220427
  2. OPDIVO [Suspect]
     Active Substance: NIVOLUMAB
     Dates: start: 20220629
  3. OPDIVO [Suspect]
     Active Substance: NIVOLUMAB
     Dates: start: 20220909
  4. YERVOY [Suspect]
     Active Substance: IPILIMUMAB
     Indication: Metastatic malignant melanoma
     Dosage: DOSE : UNAV;     FREQ : UNAV
     Dates: start: 20220427
  5. METHIMAZOLE [Concomitant]
     Active Substance: METHIMAZOLE
     Indication: Product used for unknown indication
  6. CEFUROXIME SODIUM [Concomitant]
     Active Substance: CEFUROXIME SODIUM
     Indication: Product used for unknown indication
  7. PREDNISONE [Concomitant]
     Active Substance: PREDNISONE
     Indication: Product used for unknown indication
     Dosage: 80MG / DAY FROM JULY 12, 2022 (AFTER GIVING BLOOD FOR CORTISOL LEVELS)
     Dates: start: 20220712
  8. HYDROCORTISONE [Concomitant]
     Active Substance: HYDROCORTISONE
     Indication: Product used for unknown indication
     Dosage: DOSE-20MG-10MG 5 FOR 2 WEEKS WAS RECOMMENDED, IN CASE OF INFECTION 30-20-10MG
     Dates: start: 20220718
  9. METHIMAZOLE [Concomitant]
     Active Substance: METHIMAZOLE
     Indication: Product used for unknown indication
  10. SOLU-MEDROL [Concomitant]
     Active Substance: METHYLPREDNISOLONE SODIUM SUCCINATE
     Indication: Product used for unknown indication
     Route: 042
     Dates: start: 20220922
  11. DEXAMETHASONE [Concomitant]
     Active Substance: DEXAMETHASONE
     Indication: Product used for unknown indication
     Dosage: DOSE-16-0-12 MG TBL P.O., PLEASE REDUCE DOSE BY 4 MG (1TBL) EVERY 4-5 DAYS
     Route: 048
  12. BISEPTOL [Concomitant]
     Active Substance: SULFAMETHOXAZOLE\TRIMETHOPRIM
     Indication: Product used for unknown indication
     Dosage: DOSE- 960 MG 1X1 TBL P.O.
     Route: 048
  13. FLUCOFAST [Concomitant]
     Indication: Product used for unknown indication
     Dosage: DOSE-100 MG 1X1 TBL P.O.
     Route: 048
  14. ESOMEPRAZOLE MAGNESIUM [Concomitant]
     Active Substance: ESOMEPRAZOLE MAGNESIUM
     Indication: Product used for unknown indication
     Dosage: DOSE-20 MG 1X1 TBL P.O. ON AN EMPTY STOMACH
     Route: 048
  15. ORNITHINE ASPARTATE [Concomitant]
     Active Substance: ORNITHINE ASPARTATE
     Indication: Product used for unknown indication
     Dosage: DOSE-3000 2X1 SACHET P.O
     Route: 048
  16. INSULIN HUMAN [Concomitant]
     Active Substance: INSULIN HUMAN
     Indication: Steroid diabetes
     Dosage: DOSE- 200MG% 4-8 UNITS S.C
     Route: 058
  17. EUTHYROX [Concomitant]
     Active Substance: LEVOTHYROXINE SODIUM
     Indication: Product used for unknown indication

REACTIONS (13)
  - Diarrhoea [Recovered/Resolved]
  - Cough [Recovering/Resolving]
  - Pyrexia [Unknown]
  - Hyperhidrosis [Unknown]
  - Eye pain [Unknown]
  - Arthralgia [Unknown]
  - Rash papular [Unknown]
  - Asthenia [Unknown]
  - Blood pressure decreased [Unknown]
  - Tachycardia [Unknown]
  - Muscular weakness [Unknown]
  - Upper respiratory tract infection [Unknown]
  - Steroid diabetes [Unknown]

NARRATIVE: CASE EVENT DATE: 20220429
